FAERS Safety Report 7309996-1 (Version None)
Quarter: 2011Q1

REPORT INFORMATION
  Report Type: 
  Country: None (occurrence: None)
  Receive Date: 20110224
  Receipt Date: 20110217
  Transmission Date: 20110831
  Serious: Yes (Hospitalization, Other)
  Sender: FDA-Public Use
  Company Number: US-BAYER-2011-004029

PATIENT
  Sex: Female

DRUGS (4)
  1. INTERFERON BETA-1B [Suspect]
     Dosage: 0.25 MG, QOD
     Route: 058
     Dates: start: 20100409, end: 20101117
  2. HEPARIN [Concomitant]
     Indication: THROMBOSIS PROPHYLAXIS
  3. INTERFERON BETA-1B [Suspect]
     Indication: RELAPSING-REMITTING MULTIPLE SCLEROSIS
     Dosage: 0.25 MG, QOD
     Route: 058
     Dates: end: 20050308
  4. COUMADIN [Concomitant]
     Route: 048

REACTIONS (3)
  - CONFUSIONAL STATE [None]
  - CYSTITIS [None]
  - CONVULSION [None]
